FAERS Safety Report 10798721 (Version 2)
Quarter: 2015Q2

REPORT INFORMATION
  Report Type: Spontaneous
  Country: US (occurrence: US)
  Receive Date: 20150216
  Receipt Date: 20150402
  Transmission Date: 20150821
  Serious: No
  Sender: FDA-Public Use
  Company Number: US-BAYER-2015-022804

PATIENT

DRUGS (10)
  1. ALEVE [Suspect]
     Active Substance: NAPROXEN SODIUM
     Indication: DYSMENORRHOEA
  2. ALEVE [Suspect]
     Active Substance: NAPROXEN SODIUM
     Indication: HEADACHE
  3. ALEVE [Suspect]
     Active Substance: NAPROXEN SODIUM
     Indication: APPETITE DISORDER
  4. ALEVE [Suspect]
     Active Substance: NAPROXEN SODIUM
     Indication: ABDOMINAL DISCOMFORT
  5. ALEVE [Suspect]
     Active Substance: NAPROXEN SODIUM
     Indication: ANXIETY
  6. ALEVE [Suspect]
     Active Substance: NAPROXEN SODIUM
     Indication: SLEEP DISORDER THERAPY
  7. ALEVE [Suspect]
     Active Substance: NAPROXEN SODIUM
     Indication: MYALGIA
     Dosage: UNK
     Route: 048
  8. ALEVE [Suspect]
     Active Substance: NAPROXEN SODIUM
     Indication: NASOPHARYNGITIS
  9. ALEVE [Suspect]
     Active Substance: NAPROXEN SODIUM
     Indication: BACK PAIN
  10. ALEVE [Suspect]
     Active Substance: NAPROXEN SODIUM
     Indication: PYREXIA

REACTIONS (2)
  - Medication error [None]
  - Therapeutic response unexpected [None]
